FAERS Safety Report 5654248-9 (Version None)
Quarter: 2008Q1

REPORT INFORMATION
  Report Type: 
  Country: None (occurrence: None)
  Receive Date: 20080201
  Receipt Date: 20051128
  Transmission Date: 20080703
  Serious: No
  Sender: FDA-Public Use
  Company Number: 20084543

PATIENT
  Age: 34 Year
  Sex: Male

DRUGS (1)
  1. LIORESAL [Suspect]
     Indication: MUSCLE SPASTICITY
     Dosage: MCG, DAILY, INTRATHECAL
     Route: 037

REACTIONS (2)
  - HYPOTONIA [None]
  - TREMOR [None]
